FAERS Safety Report 10432514 (Version 1)
Quarter: 2014Q3

REPORT INFORMATION
  Report Type: Spontaneous
  Country: US (occurrence: None)
  Receive Date: 20140815
  Receipt Date: 20140815
  Transmission Date: 20150326
  Serious: No
  Sender: FDA-Public Use
  Company Number: A-US2014-100821

PATIENT
  Age: 47 Year
  Sex: Female

DRUGS (3)
  1. REVATIO (SILDENAFIL CITRATE) [Concomitant]
  2. OPSUMIT [Suspect]
     Active Substance: MACITENTAN
     Indication: PULMONARY HYPERTENSION
     Route: 048
  3. TYVASO (TREPROSTINIL SODIUM) [Concomitant]

REACTIONS (2)
  - Nasal congestion [None]
  - Headache [None]
